FAERS Safety Report 6188904-3 (Version None)
Quarter: 2009Q2

REPORT INFORMATION
  Report Type: 
  Country: None (occurrence: None)
  Receive Date: 20090513
  Receipt Date: 20090505
  Transmission Date: 20091009
  Serious: Yes (Other)
  Sender: FDA-Public Use
  Company Number: PHEH2009US04442

PATIENT
  Sex: Female

DRUGS (2)
  1. EXFORGE [Suspect]
     Dosage: 5/160 MG QD
     Route: 048
  2. LIPITOR [Concomitant]

REACTIONS (2)
  - ARTHRALGIA [None]
  - DYSSTASIA [None]
